FAERS Safety Report 4277864-8 (Version None)
Quarter: 2004Q1

REPORT INFORMATION
  Report Type: 
  Country: None (occurrence: None)
  Receive Date: 20040121
  Receipt Date: 20031102
  Transmission Date: 20041129
  Serious: Yes (Hospitalization)
  Sender: FDA-Public Use
  Company Number: 2002-12-1106

PATIENT
  Age: 32 Year
  Sex: Male

DRUGS (6)
  1. SUBUTEX [Suspect]
     Indication: DRUG DEPENDENCE
     Dosage: 20-8 MG QD* SUBLINGUAL
     Route: 060
     Dates: start: 20021121, end: 20021212
  2. SUBUTEX [Suspect]
     Indication: DRUG DEPENDENCE
     Dosage: 20-8 MG QD* SUBLINGUAL
     Route: 060
     Dates: start: 20021212, end: 20021212
  3. NEURONTIN [Concomitant]
  4. RIVOTRIL TABLETS [Concomitant]
  5. ACETAMINOPHEN [Concomitant]
  6. METHADONE HCL [Concomitant]

REACTIONS (6)
  - ABDOMINAL PAIN UPPER [None]
  - APPENDICITIS [None]
  - HEPATITIS TOXIC [None]
  - PYREXIA [None]
  - RENAL FAILURE [None]
  - VOMITING [None]
